FAERS Safety Report 19278937 (Version 1)
Quarter: 2021Q2

REPORT INFORMATION
  Report Type: Report from Study
  Country: None (occurrence: CA)
  Receive Date: 20210520
  Receipt Date: 20210520
  Transmission Date: 20210717
  Serious: Yes (Other)
  Sender: FDA-Public Use
  Company Number: CA-ABBVIE-21K-028-3908864-00

PATIENT
  Age: 29 Year
  Sex: Male

DRUGS (1)
  1. HUMIRA [Suspect]
     Active Substance: ADALIMUMAB
     Indication: HIDRADENITIS
     Route: 058
     Dates: start: 20201209

REACTIONS (12)
  - Mental disorder [Unknown]
  - Impatience [Not Recovered/Not Resolved]
  - Job dissatisfaction [Not Recovered/Not Resolved]
  - Suicidal ideation [Not Recovered/Not Resolved]
  - Feeling abnormal [Unknown]
  - Nervousness [Not Recovered/Not Resolved]
  - Mental disorder [Not Recovered/Not Resolved]
  - Hypophagia [Not Recovered/Not Resolved]
  - Abdominal pain [Unknown]
  - Tooth disorder [Not Recovered/Not Resolved]
  - General physical condition abnormal [Unknown]
  - Toothache [Unknown]

NARRATIVE: CASE EVENT DATE: 2021
